FAERS Safety Report 14163827 (Version 1)
Quarter: 2017Q4

REPORT INFORMATION
  Report Type: Spontaneous
  Country: US (occurrence: US)
  Receive Date: 20171107
  Receipt Date: 20171107
  Transmission Date: 20180321
  Serious: No
  Sender: FDA-Public Use
  Company Number: US-WEST-WARD PHARMACEUTICALS CORP.-US-H14001-17-00707

PATIENT
  Sex: Female

DRUGS (3)
  1. BUPRENORPHINE SUBLINGUAL TABLETS [Suspect]
     Active Substance: BUPRENORPHINE
     Indication: PAIN
     Route: 048
     Dates: end: 20170307
  2. TRINTELLIX [Concomitant]
     Active Substance: VORTIOXETINE HYDROBROMIDE
     Indication: PRODUCT USED FOR UNKNOWN INDICATION
     Route: 065
  3. BUPRENORPHINE SUBLINGUAL TABLETS [Suspect]
     Active Substance: BUPRENORPHINE
     Route: 048
     Dates: start: 20160620

REACTIONS (2)
  - Paraesthesia oral [Recovered/Resolved]
  - Hypoaesthesia oral [Recovered/Resolved]
